FAERS Safety Report 10255668 (Version 1)
Quarter: 2014Q2

REPORT INFORMATION
  Report Type: Report from Study
  Country: US (occurrence: None)
  Receive Date: 20140620
  Receipt Date: 20140620
  Transmission Date: 20141212
  Serious: Yes (Hospitalization)
  Sender: FDA-Public Use
  Company Number: 2014SGN00700

PATIENT
  Age: 76 Year
  Sex: Female
  Weight: 63.1 kg

DRUGS (7)
  1. STUDY DRUG [Suspect]
     Indication: PERIPHERAL T-CELL LYMPHOMA UNSPECIFIED STAGE III
     Dates: start: 20140602, end: 20140602
  2. CYCLOPHOSPHAMIDE [Suspect]
     Indication: PERIPHERAL T-CELL LYMPHOMA UNSPECIFIED STAGE III
     Route: 042
     Dates: start: 20140602, end: 20140602
  3. CYCLOPHOSPHAMIDE [Suspect]
     Route: 042
     Dates: start: 20140602, end: 20140602
  4. DOXORUBICIN [Suspect]
     Indication: PERIPHERAL T-CELL LYMPHOMA UNSPECIFIED STAGE III
     Route: 042
     Dates: start: 20140602, end: 20140602
  5. PREDNISONE [Suspect]
     Indication: PERIPHERAL T-CELL LYMPHOMA UNSPECIFIED STAGE III
     Dosage: QCYCLE
     Route: 048
     Dates: start: 20140602, end: 20140602
  6. ALLOPURINOL [Concomitant]
  7. FLUCONAZOLE [Concomitant]

REACTIONS (2)
  - Deep vein thrombosis [None]
  - Renal failure acute [None]
